FAERS Safety Report 7026970-3 (Version None)
Quarter: 2010Q3

REPORT INFORMATION
  Report Type: 
  Country: None (occurrence: None)
  Receive Date: 20100929
  Receipt Date: 20100914
  Transmission Date: 20110219
  Serious: Yes (Hospitalization)
  Sender: FDA-Public Use
  Company Number: DSA_43984_2010

PATIENT
  Age: 71 Year
  Sex: Male

DRUGS (14)
  1. ENALAPRIL MALEATE [Suspect]
     Indication: HYPERTENSION
     Dosage: (20 MG D ORAL)
     Route: 048
     Dates: start: 20060101
  2. NOVORAPID (NOVORAPID-INSULIN ASPART) (NOT SPECIFIED) [Suspect]
     Indication: TYPE 2 DIABETES MELLITUS
     Dosage: SEE IMAGE
     Route: 058
     Dates: start: 20080101, end: 20080905
  3. NOVORAPID (NOVORAPID-INSULIN ASPART) (NOT SPECIFIED) [Suspect]
     Indication: TYPE 2 DIABETES MELLITUS
     Dosage: SEE IMAGE
     Route: 058
     Dates: start: 20080906, end: 20080906
  4. NOVORAPID (NOVORAPID-INSULIN ASPART) (NOT SPECIFIED) [Suspect]
     Indication: TYPE 2 DIABETES MELLITUS
     Dosage: SEE IMAGE
     Route: 058
     Dates: start: 20080907, end: 20080907
  5. NOVORAPID (NOVORAPID-INSULIN ASPART) (NOT SPECIFIED) [Suspect]
     Indication: TYPE 2 DIABETES MELLITUS
     Dosage: SEE IMAGE
     Route: 058
     Dates: start: 20080908, end: 20080908
  6. NOVORAPID (NOVORAPID-INSULIN ASPART) (NOT SPECIFIED) [Suspect]
     Indication: TYPE 2 DIABETES MELLITUS
     Dosage: SEE IMAGE
     Route: 058
     Dates: start: 20080909, end: 20080909
  7. LEVEMIR [Suspect]
     Indication: TYPE 2 DIABETES MELLITUS
     Dosage: (14 IU QD SUBCUTANEOUS)
     Route: 058
     Dates: start: 20080101
  8. LERCANIDIPINE [Suspect]
     Indication: HYPERTENSION
     Dosage: (10 MG QD ORAL)
     Route: 048
     Dates: start: 20060101
  9. OPIPRAMOL HYDROCHLORIDE (OPIPRAMOL HYDROCHLORIDE) [Suspect]
     Indication: RESTLESSNESS
     Dosage: (50 MG BID ORAL)
     Route: 048
     Dates: start: 20070101, end: 20080906
  10. PLETAL [Concomitant]
  11. CLOPIDOGREL BISULFATE [Concomitant]
  12. MELPERONE [Concomitant]
  13. TARGIN [Concomitant]
  14. PENTOXIFYLLINE [Concomitant]

REACTIONS (11)
  - BLOOD GLUCOSE INCREASED [None]
  - CAROTID ARTERIOSCLEROSIS [None]
  - DECREASED APPETITE [None]
  - DIABETIC NEUROPATHY [None]
  - DIZZINESS [None]
  - HYPOGLYCAEMIA [None]
  - NEPHROPATHY [None]
  - NEUROPATHY PERIPHERAL [None]
  - RESTLESSNESS [None]
  - RETINOPATHY [None]
  - WEIGHT DECREASED [None]
